FAERS Safety Report 5331298-3 (Version None)
Quarter: 2007Q2

REPORT INFORMATION
  Report Type: 
  Country: None (occurrence: None)
  Receive Date: 20070522
  Receipt Date: 20070516
  Transmission Date: 20071010
  Serious: Yes (Other)
  Sender: FDA-Public Use
  Company Number: BR-JNJFOC-20070504924

PATIENT
  Age: 8 Year
  Sex: Female
  Weight: 27 kg

DRUGS (2)
  1. HALDOL [Suspect]
     Indication: NERVOUSNESS
  2. HALDOL [Suspect]
     Indication: PSYCHOMOTOR HYPERACTIVITY
     Dosage: SINGLE DOSE OF 15 DROPS

REACTIONS (4)
  - APHASIA [None]
  - MUSCLE CONTRACTIONS INVOLUNTARY [None]
  - SALIVARY HYPERSECRETION [None]
  - TORTICOLLIS [None]
